FAERS Safety Report 6013410-6 (Version None)
Quarter: 2008Q4

REPORT INFORMATION
  Report Type: 
  Country: None (occurrence: None)
  Receive Date: 20081219
  Receipt Date: 20081209
  Transmission Date: 20090506
  Serious: Yes (Hospitalization, Disabling, Other)
  Sender: FDA-Public Use
  Company Number: US-PFIZER INC-2008009662

PATIENT
  Sex: Male
  Weight: 120 kg

DRUGS (16)
  1. VIAGRA [Suspect]
     Indication: ERECTILE DYSFUNCTION
     Dates: start: 20050101, end: 20080301
  2. VIAGRA [Suspect]
     Indication: BACK PAIN
  3. VIAGRA [Suspect]
     Indication: ARTHRALGIA
  4. TUMS [Concomitant]
  5. METFORMIN HCL [Concomitant]
     Route: 048
  6. TYLENOL (CAPLET) [Concomitant]
  7. ALL OTHER THERAPEUTIC PRODUCTS [Concomitant]
  8. TRAMADOL HCL [Concomitant]
  9. VICODIN [Concomitant]
  10. MECLIZINE [Concomitant]
  11. PROCHLORPERAZINE [Concomitant]
  12. ANAPROX [Concomitant]
  13. ATIVAN [Concomitant]
  14. THIAMINE HCL [Concomitant]
  15. FOLIC ACID [Concomitant]
  16. PROTONIX [Concomitant]

REACTIONS (17)
  - ARTHRALGIA [None]
  - BACK PAIN [None]
  - BLINDNESS [None]
  - CHEST DISCOMFORT [None]
  - CHEST PAIN [None]
  - DEAFNESS [None]
  - DEAFNESS UNILATERAL [None]
  - DIABETES MELLITUS [None]
  - DIZZINESS [None]
  - HEADACHE [None]
  - LOSS OF CONSCIOUSNESS [None]
  - MOTION SICKNESS [None]
  - MUSCULOSKELETAL PAIN [None]
  - NASAL CONGESTION [None]
  - PAIN [None]
  - RHINORRHOEA [None]
  - VISION BLURRED [None]
